FAERS Safety Report 14340760 (Version 3)
Quarter: 2018Q1

REPORT INFORMATION
  Report Type: Report from Study
  Country: None (occurrence: ES)
  Receive Date: 20180101
  Receipt Date: 20180123
  Transmission Date: 20180509
  Serious: Yes (Other)
  Sender: FDA-Public Use
  Company Number: ES-ABBVIE-17K-144-2207940-00

PATIENT
  Age: 66 Year
  Sex: Female
  Weight: 70 kg

DRUGS (2)
  1. DUODOPA [Suspect]
     Active Substance: CARBIDOPA\LEVODOPA
     Dosage: THE CONTINUOUS DOSE WAS INCREASED 0.2 ML
     Route: 050
     Dates: start: 2017
  2. DUODOPA [Suspect]
     Active Substance: CARBIDOPA\LEVODOPA
     Indication: PARKINSON^S DISEASE
     Route: 050
     Dates: start: 20170906, end: 2017

REACTIONS (4)
  - On and off phenomenon [Recovered/Resolved]
  - Upper limb fracture [Recovering/Resolving]
  - Fall [Recovered/Resolved]
  - Freezing phenomenon [Unknown]

NARRATIVE: CASE EVENT DATE: 20171201
